FAERS Safety Report 6172279-X (Version None)
Quarter: 2009Q2

REPORT INFORMATION
  Report Type: 
  Country: None (occurrence: None)
  Receive Date: 20090429
  Receipt Date: 20090427
  Transmission Date: 20091009
  Serious: Yes (Other)
  Sender: FDA-Public Use
  Company Number: BR-B.I. PHARMACEUTICALS,INC./RIDGEFIELD-2009-BR-00383BR

PATIENT
  Age: 28 Year
  Sex: Male

DRUGS (4)
  1. ATENSINA [Suspect]
     Indication: HYPERTENSION
     Dosage: REFER TO NARRATIVE
     Route: 048
     Dates: end: 20090422
  2. ATENSINA [Suspect]
     Dosage: REFER TO NARRATIVE
     Route: 048
  3. PROPRANOLOL [Concomitant]
     Indication: HYPERTENSION
  4. MINOXIDIL [Concomitant]
     Indication: HYPERTENSION

REACTIONS (2)
  - BLOOD PRESSURE INCREASED [None]
  - DRUG INEFFECTIVE [None]
